FAERS Safety Report 9925879 (Version 3)
Quarter: 2014Q1

REPORT INFORMATION
  Report Type: Spontaneous
  Country: JP (occurrence: JP)
  Receive Date: 20140226
  Receipt Date: 20140326
  Transmission Date: 20141002
  Serious: Yes (Other)
  Sender: FDA-Public Use
  Company Number: JP-UCBSA-113293

PATIENT
  Age: 15 Year
  Sex: Male

DRUGS (1)
  1. E KEPPRA [Suspect]
     Dosage: UNKNOWN DOSE
     Route: 048

REACTIONS (1)
  - Syncope [Unknown]
